FAERS Safety Report 8603249-7 (Version None)
Quarter: 2012Q3

REPORT INFORMATION
  Report Type: 
  Country: None (occurrence: None)
  Receive Date: 20120817
  Receipt Date: 20120810
  Transmission Date: 20120928
  Serious: Yes (Hospitalization, Other)
  Sender: FDA-Public Use
  Company Number: SI-ACTELION-A-CH2012-69928

PATIENT
  Age: 7 Year
  Sex: Male
  Weight: 44 kg

DRUGS (4)
  1. PRIMOTREN [Concomitant]
  2. TRACLEER [Suspect]
     Indication: PORTOPULMONARY HYPERTENSION
     Dosage: 62.5 MG, BID
     Route: 048
     Dates: start: 20070320, end: 20120617
  3. TRACLEER [Suspect]
     Dosage: 31.25 MG, BID
     Route: 048
     Dates: start: 20070220, end: 20070319
  4. PROGRAF [Concomitant]

REACTIONS (7)
  - ALANINE AMINOTRANSFERASE INCREASED [None]
  - BURKITT'S LYMPHOMA [None]
  - BIOPSY LIVER [None]
  - HEPATOTOXICITY [None]
  - LIVER TRANSPLANT [None]
  - LIVER TRANSPLANT REJECTION [None]
  - ASPARTATE AMINOTRANSFERASE INCREASED [None]
